FAERS Safety Report 12902518 (Version 1)
Quarter: 2016Q4

REPORT INFORMATION
  Report Type: Spontaneous
  Country: US (occurrence: US)
  Receive Date: 20161101
  Receipt Date: 20161101
  Transmission Date: 20170207
  Serious: Yes (Other)
  Sender: FDA-Public Use
  Company Number: None

PATIENT
  Age: 22 Year
  Sex: Male
  Weight: 75.6 kg

DRUGS (1)
  1. PREDNISONE 20MG TABLETS [Suspect]
     Active Substance: PREDNISONE
     Indication: LIGAMENT SPRAIN
     Route: 048

REACTIONS (4)
  - Accident at work [None]
  - Concussion [None]
  - Head injury [None]
  - Ligament sprain [None]

NARRATIVE: CASE EVENT DATE: 20160610
